FAERS Safety Report 6674047-9 (Version None)
Quarter: 2010Q1

REPORT INFORMATION
  Report Type: 
  Country: None (occurrence: None)
  Receive Date: 20100329
  Receipt Date: 20091124
  Transmission Date: 20100710
  Serious: Yes (Other)
  Sender: FDA-Public Use
  Company Number: 2009287228

PATIENT
  Age: 46 Year
  Sex: Female
  Weight: 90.7 kg

DRUGS (2)
  1. GEODON [Suspect]
     Indication: BIPOLAR DISORDER
     Dosage: 80 MG, 2X/DAY, ORAL
     Route: 048
     Dates: start: 20040101
  2. DEPAKOTE [Suspect]
     Indication: AKATHISIA

REACTIONS (5)
  - AKATHISIA [None]
  - DYSKINESIA [None]
  - HYPERTENSION [None]
  - MENOPAUSE [None]
  - WEIGHT INCREASED [None]
